FAERS Safety Report 12074646 (Version 1)
Quarter: 2016Q1

REPORT INFORMATION
  Report Type: Spontaneous
  Country: US (occurrence: US)
  Receive Date: 20160212
  Receipt Date: 20160212
  Transmission Date: 20160526
  Serious: Yes (Other)
  Sender: FDA-Public Use
  Company Number: US-B.I. PHARMACEUTICALS,INC./RIDGEFIELD-2016-BI-07090BP

PATIENT
  Age: 74 Year
  Sex: Male

DRUGS (4)
  1. DULCOLAX (BISACODYL) [Suspect]
     Active Substance: BISACODYL
     Route: 054
  2. DULCOLAX (BISACODYL) [Suspect]
     Active Substance: BISACODYL
     Indication: BOWEL PREPARATION
     Dosage: 3 ANZ
     Route: 048
     Dates: start: 20160203
  3. DULCOLAX (BISACODYL) [Suspect]
     Active Substance: BISACODYL
     Indication: CONSTIPATION
     Route: 048
     Dates: start: 2014
  4. DULCOLAX (BISACODYL) [Suspect]
     Active Substance: BISACODYL
     Indication: CONSTIPATION
     Dosage: 20 MG
     Route: 054
     Dates: start: 20160203, end: 20160203

REACTIONS (5)
  - Abdominal distension [Not Recovered/Not Resolved]
  - Inappropriate schedule of drug administration [Recovered/Resolved]
  - Off label use [Recovered/Resolved]
  - Urinary bladder polyp [Recovered/Resolved]
  - Abdominal pain [Not Recovered/Not Resolved]

NARRATIVE: CASE EVENT DATE: 2014
